FAERS Safety Report 14123993 (Version 8)
Quarter: 2018Q3

REPORT INFORMATION
  Report Type: Report from Study
  Country: None (occurrence: US)
  Receive Date: 20171025
  Receipt Date: 20180925
  Transmission Date: 20181010
  Serious: Yes (Hospitalization)
  Sender: FDA-Public Use
  Company Number: US-ABBVIE-17K-163-2075042-00

PATIENT
  Sex: Male

DRUGS (2)
  1. HUMIRA [Suspect]
     Active Substance: ADALIMUMAB
     Route: 058
     Dates: start: 201712
  2. HUMIRA [Suspect]
     Active Substance: ADALIMUMAB
     Indication: CROHN^S DISEASE
     Route: 058
     Dates: start: 2009, end: 2017

REACTIONS (7)
  - Abdominal adhesions [Unknown]
  - Nausea [Unknown]
  - Intestinal obstruction [Unknown]
  - Intestinal stenosis [Unknown]
  - Crohn^s disease [Unknown]
  - Crohn^s disease [Recovered/Resolved]
  - Drug specific antibody absent [Unknown]

NARRATIVE: CASE EVENT DATE: 2016
